FAERS Safety Report 6428052-8 (Version None)
Quarter: 2009Q4

REPORT INFORMATION
  Report Type: 
  Country: None (occurrence: None)
  Receive Date: 20091105
  Receipt Date: 20091027
  Transmission Date: 20100525
  Serious: Yes (Hospitalization)
  Sender: FDA-Public Use
  Company Number: JP-JNJFOC-20081001284

PATIENT
  Sex: Male
  Weight: 45 kg

DRUGS (12)
  1. ITRIZOLE [Suspect]
     Route: 048
  2. ITRIZOLE [Suspect]
     Route: 048
  3. ITRIZOLE [Suspect]
     Indication: BRONCHOPULMONARY ASPERGILLOSIS
     Dosage: 200 MG TWICE A DAY
     Route: 048
  4. ITRIZOLE [Suspect]
     Route: 041
     Dates: start: 20080710
  5. GASMOTIN [Concomitant]
     Indication: DECREASED APPETITE
     Route: 048
  6. URSO 250 [Concomitant]
     Indication: BILIARY CIRRHOSIS PRIMARY
     Route: 048
  7. COLD MEDICINE [Concomitant]
     Indication: NASOPHARYNGITIS
     Route: 065
  8. MEDICON [Concomitant]
     Route: 048
     Dates: start: 20090713
  9. AMOBAN [Concomitant]
     Indication: INSOMNIA
     Route: 048
     Dates: start: 20090806
  10. CLARITH [Concomitant]
     Route: 048
     Dates: start: 20091007
  11. PURSENNID [Concomitant]
     Indication: CONSTIPATION
     Route: 048
  12. CODEINE PHOSPHATE [Concomitant]
     Indication: COUGH
     Route: 048
     Dates: start: 20090624

REACTIONS (8)
  - DECREASED APPETITE [None]
  - ELECTROCARDIOGRAM QT PROLONGED [None]
  - FATIGUE [None]
  - HEADACHE [None]
  - MALAISE [None]
  - NAUSEA [None]
  - PALPITATIONS [None]
  - PSEUDOALDOSTERONISM [None]
